FAERS Safety Report 4444214-3 (Version None)
Quarter: 2004Q3

REPORT INFORMATION
  Report Type: 
  Country: None (occurrence: None)
  Receive Date: 20040812
  Receipt Date: 20031217
  Transmission Date: 20050211
  Serious: Yes (Hospitalization, Other)
  Sender: FDA-Public Use
  Company Number: USA031254883

PATIENT
  Age: 82 Year
  Sex: Male
  Weight: 49 kg

DRUGS (4)
  1. HUMULIN L [Suspect]
     Dates: end: 20031101
  2. HUMULIN R [Suspect]
     Dosage: 2 U/1 IN THE MORNING
     Dates: start: 20031101
  3. HUMULIN N [Suspect]
     Dosage: 15 U/1 IN THE MORNING
     Dates: start: 20031101
  4. INSULIN [Suspect]
     Dates: start: 19860101

REACTIONS (8)
  - BLOOD GLUCOSE ABNORMAL [None]
  - BLOOD GLUCOSE DECREASED [None]
  - DYSKINESIA [None]
  - FALL [None]
  - HIP FRACTURE [None]
  - HYPERTENSION [None]
  - VISUAL ACUITY REDUCED [None]
  - WEIGHT DECREASED [None]
